FAERS Safety Report 6049999-0 (Version None)
Quarter: 2009Q1

REPORT INFORMATION
  Report Type: 
  Country: None (occurrence: None)
  Receive Date: 20090121
  Receipt Date: 20090107
  Transmission Date: 20090719
  Serious: Yes (Other)
  Sender: FDA-Public Use
  Company Number: US025265

PATIENT
  Age: 44 Year
  Sex: Female
  Weight: 58.9676 kg

DRUGS (4)
  1. PROVIGIL [Suspect]
     Indication: SOMNOLENCE
     Dosage: 200 MG QD ORAL
     Route: 048
     Dates: start: 20081222, end: 20090106
  2. SOMA [Concomitant]
  3. OXYCONTIN [Concomitant]
  4. OXYDODONE [Concomitant]

REACTIONS (12)
  - ARTHRALGIA [None]
  - CHEST PAIN [None]
  - EMPHYSEMA [None]
  - HEADACHE [None]
  - HEAT RASH [None]
  - HYPERSENSITIVITY [None]
  - MUCOUS MEMBRANE DISORDER [None]
  - PNEUMONIA [None]
  - PRURITUS [None]
  - SKIN EXFOLIATION [None]
  - VISION BLURRED [None]
  - VOMITING [None]
